FAERS Safety Report 4725211-7 (Version None)
Quarter: 2005Q3

REPORT INFORMATION
  Report Type: 
  Country: None (occurrence: None)
  Receive Date: 20050726
  Receipt Date: 20050527
  Transmission Date: 20060218
  Serious: Yes (Other)
  Sender: FDA-Public Use
  Company Number: GBWYE705131MAY05

PATIENT
  Sex: Male

DRUGS (8)
  1. ENBREL [Suspect]
     Indication: ANKYLOSING SPONDYLITIS
     Dosage: UNKNOWN
     Route: 058
     Dates: start: 20041201, end: 20050519
  2. CO-DYDRAMOL [Suspect]
     Route: 048
     Dates: start: 19950429, end: 20050428
  3. OMEPRAZOLE [Concomitant]
  4. INDOMETHACIN [Concomitant]
  5. METHOTREXATE [Concomitant]
  6. ALENDRONATE SODIUM [Concomitant]
  7. PREDNISOLONE [Concomitant]
  8. CO-PROXAMOL [Concomitant]
     Route: 048
     Dates: start: 19950520, end: 20050428

REACTIONS (2)
  - ANAPHYLACTIC REACTION [None]
  - INJECTION SITE REACTION [None]
